FAERS Safety Report 5192047-5 (Version None)
Quarter: 2006Q4

REPORT INFORMATION
  Report Type: 
  Country: None (occurrence: None)
  Receive Date: 20061220
  Receipt Date: 20061208
  Transmission Date: 20070319
  Serious: Yes (Hospitalization)
  Sender: FDA-Public Use
  Company Number: 2006146918

PATIENT
  Age: 50 Year
  Sex: Male

DRUGS (8)
  1. ALDACTONE [Suspect]
     Dosage: 25 MG (25 MG, 1 IN 1 D), ORAL
     Route: 048
     Dates: start: 20050520
  2. DIGOXIN [Concomitant]
  3. ASPIRIN [Concomitant]
  4. AMARYL [Concomitant]
  5. NORVASC [Concomitant]
  6. LIPITOR [Concomitant]
  7. KERLONE [Concomitant]
  8. DILTIAZEM HYDROCHLORIDE [Concomitant]

REACTIONS (1)
  - ASTHENIA [None]
